FAERS Safety Report 10048429 (Version 2)
Quarter: 2014Q2

REPORT INFORMATION
  Report Type: Spontaneous
  Country: AE (occurrence: AE)
  Receive Date: 20140331
  Receipt Date: 20140527
  Transmission Date: 20141212
  Serious: Yes (Other)
  Sender: FDA-Public Use
  Company Number: AE-JNJFOC-20140316081

PATIENT
  Age: 52 Year
  Sex: Male
  Weight: 93 kg

DRUGS (6)
  1. REMICADE [Suspect]
     Indication: COLITIS ULCERATIVE
     Dosage: ALMOST 1 YEAR, 6TH DOSE
     Route: 042
     Dates: start: 20140120
  2. REMICADE [Suspect]
     Indication: COLITIS ULCERATIVE
     Dosage: ALMOST 1 YEAR, 6TH DOSE
     Route: 042
     Dates: start: 2013
  3. ATACAND [Concomitant]
     Indication: HYPERTENSION
     Dosage: 1 TABLET DAILY
     Route: 065
  4. ASPIRIN [Concomitant]
     Indication: COAGULOPATHY
     Dosage: 1 TABLET DAILY
     Route: 065
  5. IMURAN [Concomitant]
     Indication: COLITIS ULCERATIVE
     Route: 065
  6. ASACOL [Concomitant]
     Indication: COLITIS ULCERATIVE
     Route: 065

REACTIONS (1)
  - Oral lichen planus [Recovered/Resolved]
